FAERS Safety Report 11301376 (Version 1)
Quarter: 2015Q3

REPORT INFORMATION
  Report Type: Spontaneous
  Country: US (occurrence: US)
  Receive Date: 20150722
  Receipt Date: 20150722
  Transmission Date: 20151125
  Serious: No
  Sender: FDA-Public Use
  Company Number: US-ELI_LILLY_AND_COMPANY-US201003004558

PATIENT
  Sex: Female

DRUGS (2)
  1. HUMATROPE [Suspect]
     Active Substance: SOMATROPIN
     Indication: POSTPARTUM HYPOPITUITARISM
     Dosage: UNK, UNKNOWN
     Route: 065
     Dates: start: 20100311
  2. POTASSIUM [Concomitant]
     Active Substance: POTASSIUM
     Dosage: 150 MEQ, DAILY (1/D)
     Route: 065

REACTIONS (2)
  - Off label use [Unknown]
  - Injection site haemorrhage [Recovered/Resolved]

NARRATIVE: CASE EVENT DATE: 20100311
